FAERS Safety Report 6561162-3 (Version None)
Quarter: 2010Q1

REPORT INFORMATION
  Report Type: 
  Country: None (occurrence: None)
  Receive Date: 20100130
  Receipt Date: 20090930
  Transmission Date: 20100710
  Serious: No
  Sender: FDA-Public Use
  Company Number: US-ABBOTT-09P-163-0600588-00

PATIENT
  Sex: Female
  Weight: 61.744 kg

DRUGS (3)
  1. HUMIRA [Suspect]
     Indication: PSORIASIS
     Dates: start: 20081001, end: 20090801
  2. ESTROGEN [Concomitant]
     Indication: HORMONE REPLACEMENT THERAPY
  3. MULTI-VITAMIN [Concomitant]
     Indication: DRUG USE FOR UNKNOWN INDICATION

REACTIONS (2)
  - DRUG DOSE OMISSION [None]
  - PSORIASIS [None]
